FAERS Safety Report 4626195-2 (Version None)
Quarter: 2005Q1

REPORT INFORMATION
  Report Type: 
  Country: None (occurrence: None)
  Receive Date: 20050330
  Receipt Date: 20050317
  Transmission Date: 20050727
  Serious: Yes (Disabling, Other)
  Sender: FDA-Public Use
  Company Number: 2005042487

PATIENT
  Age: 27 Year
  Sex: Female
  Weight: 95 kg

DRUGS (4)
  1. ZOLOFT [Suspect]
     Indication: PANIC DISORDER
     Dosage: 50 MG (50 MG, 1 IN 1 D), ORAL
     Route: 048
     Dates: start: 20020309, end: 20050301
  2. ZOLMITRIPTAN (ZOLMITRIPTAN) [Concomitant]
  3. TERBUTALINE SULFATE [Concomitant]
  4. ALBUTEROL SULFATE HFA [Concomitant]

REACTIONS (5)
  - CONDITION AGGRAVATED [None]
  - INTRACRANIAL PRESSURE INCREASED [None]
  - MIGRAINE [None]
  - OPTIC NERVE CUPPING [None]
  - VISUAL ACUITY REDUCED [None]
